FAERS Safety Report 8580836-6 (Version None)
Quarter: 2012Q3

REPORT INFORMATION
  Report Type: 
  Country: None (occurrence: None)
  Receive Date: 20120726
  Receipt Date: 20120714
  Transmission Date: 20120928
  Serious: Yes (Death)
  Sender: FDA-Public Use
  Company Number: JP-2012-15390

PATIENT
  Age: 83 Year
  Sex: Female
  Weight: 43 kg

DRUGS (8)
  1. LASIX [Concomitant]
  2. SAMSCA [Suspect]
     Indication: FLUID RETENTION
     Dosage: 15 MG MILLIGRAM(S), QAM, ORAL ; 7.5 MG MILLIGRAM(S), QAM, ORAL
     Route: 048
     Dates: start: 20120519, end: 20120528
  3. SAMSCA [Suspect]
     Indication: FLUID RETENTION
     Dosage: 15 MG MILLIGRAM(S), QAM, ORAL ; 7.5 MG MILLIGRAM(S), QAM, ORAL
     Route: 048
     Dates: start: 20120529, end: 20120529
  4. URINORM (BENZBROMARONE) [Concomitant]
  5. LANSOPRAZOLE [Concomitant]
  6. DOPUTAMIN (DOBUTAMINE HYDROCHLORIDE) [Concomitant]
  7. SODIUM POLYSTYRENE SULFONATE [Concomitant]
  8. MEROPENEM [Concomitant]

REACTIONS (6)
  - HYPERNATRAEMIA [None]
  - CONDITION AGGRAVATED [None]
  - CARDIAC FAILURE [None]
  - RENAL IMPAIRMENT [None]
  - THIRST [None]
  - DISSEMINATED INTRAVASCULAR COAGULATION [None]
